FAERS Safety Report 10157854 (Version 2)
Quarter: 2014Q2

REPORT INFORMATION
  Report Type: Report from Study
  Country: US (occurrence: US)
  Receive Date: 20140507
  Receipt Date: 20140507
  Transmission Date: 20141212
  Serious: Yes (Other)
  Sender: FDA-Public Use
  Company Number: PHEH2007US03593

PATIENT
  Age: 20 Year
  Sex: Female

DRUGS (3)
  1. EXJADE [Suspect]
     Indication: IRON OVERLOAD
     Dosage: 1500 MG, QD
     Route: 048
     Dates: start: 20060405
  2. PRENATAL VITAMINS [Concomitant]
     Indication: PREGNANCY
     Dosage: UNK UKN, UNK
  3. FOLIC ACID [Concomitant]
     Indication: PREGNANCY
     Dosage: UNK UKN, UNK

REACTIONS (3)
  - Pre-eclampsia [Unknown]
  - Premature labour [Unknown]
  - Maternal exposure during pregnancy [Unknown]
